FAERS Safety Report 12668371 (Version 2)
Quarter: 2016Q4

REPORT INFORMATION
  Report Type: Spontaneous
  Country: JP (occurrence: JP)
  Receive Date: 20160819
  Receipt Date: 20161027
  Transmission Date: 20170207
  Serious: Yes (Death, Other)
  Sender: FDA-Public Use
  Company Number: JP-SA-2016SA147482

PATIENT
  Age: 51 Year
  Sex: Male

DRUGS (14)
  1. CYCLOPHOSPHAMIDE. [Suspect]
     Active Substance: CYCLOPHOSPHAMIDE
     Indication: BONE MARROW CONDITIONING REGIMEN
     Dosage: 1 DAY
     Route: 065
     Dates: start: 2012
  2. VORICONAZOLE. [Suspect]
     Active Substance: VORICONAZOLE
     Indication: ASPERGILLUS INFECTION
     Route: 065
     Dates: start: 2012
  3. MYCOPHENOLATE MOFETIL. [Suspect]
     Active Substance: MYCOPHENOLATE MOFETIL
     Indication: PROPHYLAXIS AGAINST GRAFT VERSUS HOST DISEASE
     Route: 065
     Dates: start: 2012
  4. CASPOFUNGIN [Suspect]
     Active Substance: CASPOFUNGIN
     Indication: ASPERGILLUS INFECTION
     Route: 065
     Dates: start: 2012
  5. MICAFUNGIN [Suspect]
     Active Substance: MICAFUNGIN
     Indication: ASPERGILLUS INFECTION
     Route: 065
     Dates: start: 2012
  6. ITRACONAZOLE. [Concomitant]
     Active Substance: ITRACONAZOLE
     Indication: PROPHYLAXIS
     Dates: start: 2012
  7. FLUDARABINE PHOSPHATE. [Suspect]
     Active Substance: FLUDARABINE PHOSPHATE
     Indication: BONE MARROW CONDITIONING REGIMEN
     Route: 065
     Dates: start: 201210
  8. TACROLIMUS. [Suspect]
     Active Substance: TACROLIMUS
     Indication: PROPHYLAXIS AGAINST GRAFT VERSUS HOST DISEASE
     Route: 065
     Dates: start: 2012
  9. FLUDARABINE PHOSPHATE. [Suspect]
     Active Substance: FLUDARABINE PHOSPHATE
     Indication: BONE MARROW CONDITIONING REGIMEN
     Dosage: 1 DAY
     Route: 065
  10. AMPHOTERICIN B. [Suspect]
     Active Substance: AMPHOTERICIN B
     Indication: ASPERGILLUS INFECTION
     Route: 065
     Dates: start: 2012
  11. ACYCLOVIR. [Concomitant]
     Active Substance: ACYCLOVIR
     Indication: PROPHYLAXIS
     Dates: start: 2012
  12. MELPHALAN [Suspect]
     Active Substance: MELPHALAN
     Indication: BONE MARROW CONDITIONING REGIMEN
     Dosage: 2 DAYS
     Route: 065
     Dates: start: 201210
  13. LENOGRASTIM [Concomitant]
     Active Substance: LENOGRASTIM
     Dates: start: 2012
  14. LEVOFLOXACIN. [Concomitant]
     Active Substance: LEVOFLOXACIN
     Indication: PROPHYLAXIS
     Dates: start: 2012

REACTIONS (16)
  - Pulmonary mass [Fatal]
  - Pyrexia [Fatal]
  - Cerebral haemorrhage [Fatal]
  - Epilepsy [Unknown]
  - Drug ineffective [Unknown]
  - Fungal abscess central nervous system [Fatal]
  - Intestinal mass [Fatal]
  - Central nervous system lesion [Fatal]
  - Pneumonia [Fatal]
  - Biopsy lung abnormal [Fatal]
  - Intracranial mass [Fatal]
  - Histiocytosis haematophagic [Fatal]
  - Pulmonary haemorrhage [Fatal]
  - Febrile neutropenia [Fatal]
  - Aspergillus infection [Fatal]
  - Blood beta-D-glucan increased [Fatal]

NARRATIVE: CASE EVENT DATE: 2012
